FAERS Safety Report 8989962 (Version 1)
Quarter: 2012Q4

REPORT INFORMATION
  Report Type: 
  Country: CA (occurrence: CA)
  Receive Date: 20121228
  Receipt Date: 20121228
  Transmission Date: 20130627
  Serious: Yes (Hospitalization)
  Sender: FDA-Public Use
  Company Number: CA-ELI_LILLY_AND_COMPANY-CA201212006532

PATIENT
  Age: 78 Year
  Sex: Female

DRUGS (9)
  1. FORTEO [Suspect]
     Indication: OSTEOPOROSIS
     Dosage: 20 ug, qd
     Route: 058
     Dates: start: 20110920
  2. PLAVIX [Concomitant]
     Dosage: UNK, unknown
     Route: 065
  3. PRAVASTATIN [Concomitant]
     Dosage: UNK, unknown
     Route: 065
  4. AVAPRO [Concomitant]
     Dosage: UNK, unknown
     Route: 065
  5. SOTALOL [Concomitant]
     Dosage: UNK, unknown
     Route: 065
  6. ASAPHEN [Concomitant]
  7. CALCIUM [Concomitant]
     Dosage: UNK, unknown
     Route: 065
  8. VITAMIN D [Concomitant]
     Dosage: UNK, unknown
     Route: 065
  9. TRILEPTAL [Concomitant]
     Dosage: UNK, unknown
     Route: 065

REACTIONS (1)
  - Sepsis [Recovered/Resolved]
